FAERS Safety Report 5567263-0 (Version None)
Quarter: 2007Q4

REPORT INFORMATION
  Report Type: 
  Country: None (occurrence: None)
  Receive Date: 20071219
  Receipt Date: 20071206
  Transmission Date: 20080405
  Serious: Yes (Disabling, Other)
  Sender: FDA-Public Use
  Company Number: GB-RANBAXY-2007RR-10535

PATIENT

DRUGS (5)
  1. NEURONTIN [Suspect]
     Dosage: 600 MG, TID
     Route: 048
     Dates: start: 20021201, end: 20070901
  2. BRETYLIUM [Concomitant]
     Indication: COMPLEX REGIONAL PAIN SYNDROME
     Dosage: 70 MG, UNK
     Route: 042
     Dates: start: 20050701, end: 20070701
  3. CLONAZEPAM [Concomitant]
     Indication: COMPLEX REGIONAL PAIN SYNDROME
     Dosage: 0.5 MG, QD
     Route: 048
     Dates: start: 20030401
  4. KETOROLAC [Concomitant]
     Indication: COMPLEX REGIONAL PAIN SYNDROME
     Dosage: 30 MG, UNK
     Route: 042
     Dates: start: 20050701, end: 20070701
  5. LIGNOCAINE [Concomitant]
     Indication: COMPLEX REGIONAL PAIN SYNDROME
     Dosage: 150 MG, UNK
     Route: 042
     Dates: start: 20050701, end: 20070701

REACTIONS (3)
  - BLINDNESS [None]
  - BLINDNESS TRANSIENT [None]
  - VISION BLURRED [None]
